FAERS Safety Report 7396373-0 (Version None)
Quarter: 2011Q2

REPORT INFORMATION
  Report Type: 
  Country: None (occurrence: None)
  Receive Date: 20110406
  Receipt Date: 20110325
  Transmission Date: 20111010
  Serious: No
  Sender: FDA-Public Use
  Company Number: US-ELI_LILLY_AND_COMPANY-US201002003062

PATIENT
  Age: 74 Year
  Sex: Male

DRUGS (3)
  1. CIALIS [Suspect]
     Dosage: 5 MG, DAILY (1/D)
     Route: 065
     Dates: start: 20100128
  2. CIALIS [Suspect]
     Indication: ERECTILE DYSFUNCTION
     Dosage: 20 MG, AS NEEDED
     Route: 065
     Dates: start: 20080101
  3. CIALIS [Suspect]
     Dosage: 20 MG, AS NEEDED
     Route: 065

REACTIONS (2)
  - VISUAL ACUITY REDUCED [None]
  - DRUG INEFFECTIVE [None]
